FAERS Safety Report 8301531-4 (Version None)
Quarter: 2012Q2

REPORT INFORMATION
  Report Type: 
  Country: None (occurrence: None)
  Receive Date: 20120420
  Receipt Date: 20120418
  Transmission Date: 20120825
  Serious: Yes (Life-Threatening, Hospitalization)
  Sender: FDA-Public Use
  Company Number: US-B.I. PHARMACEUTICALS,INC./RIDGEFIELD-2012-BP-05984BP

PATIENT
  Sex: Female
  Weight: 48.53 kg

DRUGS (6)
  1. PRADAXA [Suspect]
     Indication: CARDIOMYOPATHY
  2. PRADAXA [Suspect]
     Indication: ATRIAL FIBRILLATION
     Dosage: 300 MG
     Route: 048
     Dates: start: 20110502, end: 20120314
  3. PRADAXA [Suspect]
     Indication: VENTRICULAR TACHYCARDIA
  4. ALDACTONE [Concomitant]
     Dosage: 25 MG
     Route: 048
  5. ZOCOR [Concomitant]
     Dosage: 40 MG
     Route: 048
  6. COREG [Concomitant]
     Dosage: 12.5 MG
     Route: 048

REACTIONS (2)
  - GASTROINTESTINAL HAEMORRHAGE [None]
  - ANAEMIA [None]
